FAERS Safety Report 22003922 (Version 2)
Quarter: 2023Q2

REPORT INFORMATION
  Report Type: Spontaneous
  Country: US (occurrence: US)
  Receive Date: 20230217
  Receipt Date: 20230524
  Transmission Date: 20230722
  Serious: Yes (Other)
  Sender: FDA-Public Use
  Company Number: US-JNJFOC-20230225671

PATIENT
  Sex: Female

DRUGS (1)
  1. DARZALEX FASPRO [Suspect]
     Active Substance: DARATUMUMAB\HYALURONIDASE-FIHJ
     Indication: Product used for unknown indication
     Route: 058
     Dates: start: 202201

REACTIONS (8)
  - B-cell lymphoma [Recovering/Resolving]
  - Altered state of consciousness [Unknown]
  - Splenomegaly [Unknown]
  - Thrombocytopenia [Unknown]
  - Pleural effusion [Unknown]
  - Hypotension [Unknown]
  - Emphysema [Unknown]
  - Haemoglobin decreased [Unknown]
